FAERS Safety Report 25085001 (Version 2)
Quarter: 2025Q1

REPORT INFORMATION
  Report Type: Report from Study
  Country: FI (occurrence: FI)
  Receive Date: 20250317
  Receipt Date: 20250328
  Transmission Date: 20250409
  Serious: Yes (Death)
  Sender: TEVA
  Company Number: FI-TEVA-VS-3309799

PATIENT

DRUGS (2)
  1. MYCOPHENOLATE MOFETIL [Suspect]
     Active Substance: MYCOPHENOLATE MOFETIL
     Indication: Vanishing bile duct syndrome
     Route: 065
  2. PEMBROLIZUMAB [Suspect]
     Active Substance: PEMBROLIZUMAB
     Indication: Malignant melanoma
     Route: 065

REACTIONS (2)
  - Vanishing bile duct syndrome [Fatal]
  - Therapy non-responder [Fatal]
